FAERS Safety Report 8936172 (Version 1)
Quarter: 2012Q4

REPORT INFORMATION
  Report Type: 
  Country: US (occurrence: US)
  Receive Date: 20121130
  Receipt Date: 20121130
  Transmission Date: 20130627
  Serious: No
  Sender: FDA-Public Use
  Company Number: US-009507513-1211USA011941

PATIENT
  Sex: Female

DRUGS (2)
  1. FOSAMAX [Suspect]
     Indication: OSTEOPOROSIS
     Dosage: UNK, qw
     Route: 048
     Dates: start: 2010
  2. ZETIA [Concomitant]

REACTIONS (3)
  - Joint swelling [Recovered/Resolved]
  - Oedema peripheral [Recovered/Resolved]
  - Rash [Recovered/Resolved]
